FAERS Safety Report 10168100 (Version 2)
Quarter: 2014Q2

REPORT INFORMATION
  Report Type: Spontaneous
  Country: JP (occurrence: JP)
  Receive Date: 20140512
  Receipt Date: 20140512
  Transmission Date: 20141212
  Serious: Yes (Life-Threatening)
  Sender: FDA-Public Use
  Company Number: JP-CUBIST PHARMACEUTICALS, INC.-2014CBST000414

PATIENT
  Sex: 0

DRUGS (9)
  1. CUBICIN [Suspect]
     Indication: BACTERAEMIA
     Dosage: 250 MG, QOD
     Route: 041
     Dates: start: 20140131, end: 20140205
  2. CUBICIN [Suspect]
     Indication: SACROILIITIS
     Dosage: 250 MG, QD
     Route: 041
     Dates: start: 20140206, end: 20140210
  3. CUBICIN [Suspect]
     Indication: MUSCLE ABSCESS
     Dosage: 350 MG, QOD
     Route: 041
     Dates: start: 20140211, end: 20140307
  4. CUBICIN [Suspect]
     Indication: OFF LABEL USE
  5. MEROPENEM [Concomitant]
     Indication: BACTERAEMIA
     Dosage: 2 G, UNK
     Route: 042
     Dates: start: 20140130, end: 20140130
  6. MEROPENEM [Concomitant]
     Indication: SACROILIITIS
     Dosage: 1.5 G, UNK
     Route: 042
     Dates: start: 20140131, end: 20140205
  7. ZOSYN [Concomitant]
     Indication: BACTERAEMIA
     Dosage: 9 G, UNK
     Route: 042
     Dates: start: 20140207, end: 20140220
  8. ZOSYN [Concomitant]
     Indication: SACROILIITIS
  9. RIFAMPICIN [Concomitant]
     Indication: MUSCLE ABSCESS
     Dosage: 450 MG, UNK
     Route: 048
     Dates: start: 20140220, end: 20140307

REACTIONS (1)
  - Eosinophilic pneumonia [Recovering/Resolving]
